FAERS Safety Report 7141752-X (Version None)
Quarter: 2010Q4

REPORT INFORMATION
  Report Type: 
  Country: None (occurrence: None)
  Receive Date: 20101207
  Receipt Date: 20101201
  Transmission Date: 20110411
  Serious: Yes (Hospitalization, Disabling)
  Sender: FDA-Public Use
  Company Number: US-B.I. PHARMACEUTICALS,INC./RIDGEFIELD-2010-BP-13461BP

PATIENT
  Sex: Female

DRUGS (2)
  1. MICARDIS HCT [Suspect]
     Indication: HYPERTENSION
     Dosage: 80/12.5MG; QD
     Route: 048
     Dates: start: 19980101, end: 20080101
  2. METOPROLOL [Concomitant]
     Indication: HYPERTENSION
     Dosage: 37.5 MG
     Route: 048

REACTIONS (4)
  - CEREBROVASCULAR ACCIDENT [None]
  - DYSPHAGIA [None]
  - MACULAR DEGENERATION [None]
  - VISUAL ACUITY REDUCED [None]
